FAERS Safety Report 24423623 (Version 1)
Quarter: 2024Q4

REPORT INFORMATION
  Report Type: Spontaneous
  Country: US (occurrence: US)
  Receive Date: 20241010
  Receipt Date: 20241010
  Transmission Date: 20250115
  Serious: Yes (Other)
  Sender: BAXTER
  Company Number: US-MLMSERVICE-20240923-PI202444-00029-1

PATIENT
  Age: 75 Year
  Sex: Female

DRUGS (3)
  1. ACETAMINOPHEN [Suspect]
     Active Substance: ACETAMINOPHEN
     Indication: Pyrexia
     Route: 065
  2. VANCOMYCIN [Concomitant]
     Active Substance: VANCOMYCIN
     Indication: Pneumonia
     Dosage: COURSE
     Route: 065
  3. ZOSYN [Concomitant]
     Active Substance: PIPERACILLIN SODIUM\TAZOBACTAM SODIUM
     Indication: Pneumonia
     Dosage: COURSE
     Route: 065

REACTIONS (6)
  - Eosinophilic pneumonia [Unknown]
  - Pyrexia [Unknown]
  - Hypoxia [Recovering/Resolving]
  - Disease progression [Recovering/Resolving]
  - Lung opacity [Recovered/Resolved]
  - Neutrophilia [Unknown]
